FAERS Safety Report 7959405-4 (Version None)
Quarter: 2011Q4

REPORT INFORMATION
  Report Type: 
  Country: None (occurrence: None)
  Receive Date: 20111206
  Receipt Date: 20111129
  Transmission Date: 20120403
  Serious: Yes (Other)
  Sender: FDA-Public Use
  Company Number: US-SANOFI-AVENTIS-2011SA072123

PATIENT
  Age: 79 Year
  Sex: Male
  Weight: 80.9 kg

DRUGS (4)
  1. ELOXATIN [Suspect]
     Dosage: DOSE WAS 65MG/M2
     Route: 041
     Dates: start: 20111019, end: 20111019
  2. ELOXATIN [Suspect]
     Dosage: DOSE WAS 65MG/M2
     Route: 041
     Dates: start: 20111102, end: 20111102
  3. ELOXATIN [Suspect]
     Indication: COLON CANCER
     Route: 041
     Dates: start: 20110810, end: 20110810
  4. FERROUS SULFATE TAB [Concomitant]
     Dates: start: 20110118

REACTIONS (5)
  - DYSPNOEA [None]
  - ABDOMINAL PAIN [None]
  - CHEST PAIN [None]
  - VITAL FUNCTIONS ABNORMAL [None]
  - HYPERHIDROSIS [None]
